FAERS Safety Report 9155518 (Version 1)
Quarter: 2013Q1

REPORT INFORMATION
  Report Type: Spontaneous
  Country: ES (occurrence: ES)
  Receive Date: 20130311
  Receipt Date: 20130311
  Transmission Date: 20140127
  Serious: Yes (Other)
  Sender: FDA-Public Use
  Company Number: ES-ABBOTT-13P-144-1058414-00

PATIENT
  Sex: 0

DRUGS (1)
  1. ADALIMUMAB [Suspect]
     Indication: INFLAMMATORY BOWEL DISEASE

REACTIONS (1)
  - Intraductal papilloma of breast [Unknown]
